FAERS Safety Report 8851979 (Version 3)
Quarter: 2012Q4

REPORT INFORMATION
  Report Type: 
  Country: CA (occurrence: CA)
  Receive Date: 20121022
  Receipt Date: 20121119
  Transmission Date: 20130627
  Serious: Yes (Death, Hospitalization)
  Sender: FDA-Public Use
  Company Number: CA-BRISTOL-MYERS SQUIBB COMPANY-16931933

PATIENT
  Age: 46 Year
  Sex: Female
  Weight: 62.2 kg

DRUGS (2)
  1. ERBITUX [Suspect]
     Indication: LUNG ADENOCARCINOMA METASTATIC
     Dosage: 770mg:9Oct12:4th infusion
Last Inf: 27Sep12
     Route: 042
     Dates: start: 20120830
  2. BENADRYL [Concomitant]
     Indication: PREMEDICATION
     Route: 042

REACTIONS (5)
  - Death [Fatal]
  - Pleural effusion [Recovered/Resolved]
  - Infection [Not Recovered/Not Resolved]
  - Headache [Recovered/Resolved]
  - Nausea [Recovered/Resolved]
